FAERS Safety Report 8202338-9 (Version None)
Quarter: 2012Q1

REPORT INFORMATION
  Report Type: 
  Country: None (occurrence: None)
  Receive Date: 20120312
  Receipt Date: 20110505
  Transmission Date: 20120608
  Serious: No
  Sender: FDA-Public Use
  Company Number: US-ABBOTT-11P-163-0724028-00

PATIENT
  Sex: Female
  Weight: 78.542 kg

DRUGS (2)
  1. DEPAKOTE [Suspect]
     Indication: CORNEAL DISORDER
  2. DEPAKOTE [Suspect]
     Indication: MIGRAINE PROPHYLAXIS

REACTIONS (1)
  - RASH [None]
